FAERS Safety Report 6942393-7 (Version None)
Quarter: 2010Q3

REPORT INFORMATION
  Report Type: 
  Country: None (occurrence: None)
  Receive Date: 20100826
  Receipt Date: 20100816
  Transmission Date: 20110219
  Serious: Yes (Hospitalization)
  Sender: FDA-Public Use
  Company Number: PHHO2010US11218

PATIENT
  Sex: Female
  Weight: 96.3 kg

DRUGS (20)
  1. MYCOPHENOLIC ACID [Suspect]
     Indication: RENAL TRANSPLANT
     Dosage: 360 MG TID
  2. TACROLIMUS COMP-TAC+ [Suspect]
     Indication: RENAL TRANSPLANT
     Dosage: UNK
     Dates: start: 20100211
  3. RAPAMUNE COMP-RAP+ [Suspect]
     Indication: RENAL TRANSPLANT
     Dosage: 2 MG QD
     Route: 048
     Dates: start: 20100211
  4. AMLODIPINE [Suspect]
  5. ASPIRIN [Concomitant]
  6. FLUOXETINE [Concomitant]
  7. HYDROCHLOROTHIAZIDE [Concomitant]
  8. MAGNESIUM OXIDE [Concomitant]
  9. MULTI-VITAMIN [Concomitant]
  10. PANTOPRAZOLE [Concomitant]
  11. POTASSIUM CHLORIDE [Concomitant]
  12. PRAVASTATIN [Concomitant]
  13. PREDNISONE [Concomitant]
  14. INDERAL [Concomitant]
  15. PROZAC [Concomitant]
  16. PROTONIX [Concomitant]
  17. PANCRELIPASE [Concomitant]
  18. ASPIRIN [Concomitant]
  19. CINACALCET [Concomitant]
  20. PROPRANOLOL [Concomitant]

REACTIONS (16)
  - BLOOD PRESSURE INCREASED [None]
  - BRAIN NATRIURETIC PEPTIDE INCREASED [None]
  - CARDIAC FAILURE CONGESTIVE [None]
  - CHEST DISCOMFORT [None]
  - CHEST PAIN [None]
  - COUGH [None]
  - DIARRHOEA [None]
  - DYSPNOEA [None]
  - HAEMOPTYSIS [None]
  - OEDEMA PERIPHERAL [None]
  - OROPHARYNGEAL PAIN [None]
  - ORTHOPNOEA [None]
  - OXYGEN SATURATION DECREASED [None]
  - PHARYNGITIS [None]
  - PULMONARY HYPERTENSION [None]
  - WEIGHT INCREASED [None]
